FAERS Safety Report 18197758 (Version 1)
Quarter: 2020Q3

REPORT INFORMATION
  Report Type: Spontaneous
  Country: US (occurrence: US)
  Receive Date: 20200826
  Receipt Date: 20200826
  Transmission Date: 20201103
  Serious: No
  Sender: FDA-Public Use
  Company Number: None

PATIENT

DRUGS (2)
  1. MORPHINE [Suspect]
     Active Substance: MORPHINE
  2. KETOROLAC [Suspect]
     Active Substance: KETOROLAC TROMETHAMINE

REACTIONS (10)
  - Hypoxia [None]
  - Haemoglobin abnormal [None]
  - Wrong product administered [None]
  - Pulse pressure increased [None]
  - Haematocrit abnormal [None]
  - Multi-organ disorder [None]
  - Post procedural haemorrhage [None]
  - Subcapsular hepatic haematoma [None]
  - Drug interaction [None]
  - Post procedural complication [None]
